FAERS Safety Report 11073281 (Version 2)
Quarter: 2015Q2

REPORT INFORMATION
  Report Type: Report from Study
  Country: PR (occurrence: PR)
  Receive Date: 20150428
  Receipt Date: 20150619
  Transmission Date: 20150821
  Serious: Yes (Hospitalization, Other)
  Sender: FDA-Public Use
  Company Number: PR-ABBVIE-15K-131-1380270-00

PATIENT
  Age: 19 Year
  Sex: Female
  Weight: 54.48 kg

DRUGS (7)
  1. REGLAN [Concomitant]
     Active Substance: METOCLOPRAMIDE HYDROCHLORIDE
     Indication: PRODUCT USED FOR UNKNOWN INDICATION
  2. HUMIRA [Suspect]
     Active Substance: ADALIMUMAB
     Indication: GASTROINTESTINAL INFLAMMATION
  3. ZANTAC [Concomitant]
     Active Substance: RANITIDINE HYDROCHLORIDE
     Indication: PRODUCT USED FOR UNKNOWN INDICATION
  4. ULTRACET [Concomitant]
     Active Substance: ACETAMINOPHEN\TRAMADOL HYDROCHLORIDE
     Indication: PRODUCT USED FOR UNKNOWN INDICATION
  5. SKELAXIN [Concomitant]
     Active Substance: METAXALONE
     Indication: BONE PAIN
  6. HUMIRA [Suspect]
     Active Substance: ADALIMUMAB
     Indication: ANKYLOSING SPONDYLITIS
     Route: 058
     Dates: start: 20140603, end: 2015
  7. SULFASALAZINE. [Concomitant]
     Active Substance: SULFASALAZINE
     Indication: BONE PAIN

REACTIONS (16)
  - Clostridial infection [Unknown]
  - Fungal infection [Recovering/Resolving]
  - Syncope [Recovered/Resolved]
  - Ovarian cyst [Not Recovered/Not Resolved]
  - Bone pain [Recovered/Resolved]
  - Anal haemorrhage [Recovered/Resolved]
  - Pharyngitis [Recovering/Resolving]
  - Nasal ulcer [Recovering/Resolving]
  - Pain [Recovered/Resolved]
  - Abdominal pain [Recovered/Resolved]
  - Noninfective oophoritis [Recovered/Resolved]
  - Ear infection [Recovering/Resolving]
  - Tremor [Recovered/Resolved]
  - Ankylosing spondylitis [Unknown]
  - Pharyngeal ulceration [Recovering/Resolving]
  - Infection [Unknown]

NARRATIVE: CASE EVENT DATE: 2015
